FAERS Safety Report 8887284 (Version 1)
Quarter: 2012Q4

REPORT INFORMATION
  Report Type: Report from Study
  Country: FR (occurrence: FR)
  Receive Date: 20121105
  Receipt Date: 20121105
  Transmission Date: 20130627
  Serious: Yes (Hospitalization, Other)
  Sender: FDA-Public Use
  Company Number: FR-BAXTER-2012BAX021079

PATIENT
  Age: 14 Year
  Sex: Female
  Weight: 51.2 kg

DRUGS (16)
  1. HOLOXAN 2000 MG, POUDRE POUR USAGE PARENT?RAL [Suspect]
     Indication: SARCOMA
     Dosage: 6 G/M2
     Route: 042
     Dates: start: 20091128
  2. HOLOXAN 2000 MG, POUDRE POUR USAGE PARENT?RAL [Suspect]
     Dosage: 6 G/M2
     Route: 042
     Dates: start: 20091228
  3. HOLOXAN 2000 MG, POUDRE POUR USAGE PARENT?RAL [Suspect]
     Dosage: 6 G/M2
     Route: 042
     Dates: start: 20100224
  4. BEVACIZUMAB [Suspect]
     Indication: SARCOMA
     Route: 042
     Dates: start: 20091128
  5. BEVACIZUMAB [Suspect]
     Route: 042
     Dates: start: 20100223
  6. DOXORUBICINE [Suspect]
     Indication: SARCOMA
     Route: 042
     Dates: start: 20091128
  7. DOXORUBICINE [Suspect]
     Route: 042
     Dates: start: 20100205
  8. DACTINOMYCIN [Suspect]
     Indication: SARCOMA
     Route: 042
     Dates: start: 20091128
  9. DACTINOMYCIN [Suspect]
     Route: 042
     Dates: start: 20100223
  10. VINCRISTINE [Suspect]
     Indication: SARCOMA
     Route: 042
     Dates: start: 20091128, end: 20091204
  11. VINCRISTINE [Suspect]
     Route: 042
     Dates: start: 20091211, end: 20100102
  12. VINCRISTINE [Suspect]
     Route: 042
     Dates: start: 20100112
  13. VINCRISTINE [Suspect]
     Route: 042
     Dates: start: 20100205
  14. SULFAMETHOXAZOLE [Concomitant]
     Indication: DRUG USE FOR UNKNOWN INDICATION
     Route: 065
  15. ONDANSETRON [Concomitant]
     Indication: DRUG USE FOR UNKNOWN INDICATION
     Route: 065
  16. PARACETAMOL [Concomitant]
     Indication: DRUG USE FOR UNKNOWN INDICATION
     Route: 065

REACTIONS (10)
  - Vomiting [Recovered/Resolved]
  - Vomiting [Recovered/Resolved]
  - Pneumothorax [Recovered/Resolved]
  - Weight decreased [Not Recovered/Not Resolved]
  - Febrile neutropenia [Recovered/Resolved]
  - Febrile neutropenia [Recovered/Resolved]
  - Febrile neutropenia [Recovered/Resolved]
  - Febrile neutropenia [Recovered/Resolved]
  - Mucosal inflammation [Not Recovered/Not Resolved]
  - Anaemia [Recovered/Resolved]
